FAERS Safety Report 5401979-1 (Version None)
Quarter: 2007Q3

REPORT INFORMATION
  Report Type: 
  Country: None (occurrence: None)
  Receive Date: 20070727
  Receipt Date: 20070711
  Transmission Date: 20080115
  Serious: Yes (Hospitalization)
  Sender: FDA-Public Use
  Company Number: 2007EU001374

PATIENT
  Age: 11 Year
  Sex: Male
  Weight: 46.7 kg

DRUGS (9)
  1. PROTOPIC [Suspect]
     Indication: DERMATITIS ATOPIC
     Dosage: WEEKLY, TOPICAL
     Route: 061
     Dates: start: 20040213, end: 20070301
  2. XUSAL (LEVOCETIRIZINE HYDROCHLORIDE) [Concomitant]
  3. AURIDERM K2 (PHYTOMENADIONE) [Concomitant]
  4. ECURAL (MOMETASONE FUROATE) [Concomitant]
  5. DIPROGENTA (GENTAMICIN SULFATE, BETAMETHASONE DIPROPIONATE) [Concomitant]
  6. ADVANTA (METHYLPREDNISOLONE ACEPONATE) [Concomitant]
  7. BALUEOVIT OEL [Concomitant]
  8. KREOTOP [Concomitant]
  9. METHYLPHENIDATE HCL [Concomitant]

REACTIONS (7)
  - ARTHROPOD BITE [None]
  - BETA-2 GLYCOPROTEIN ANTIBODY POSITIVE [None]
  - CARDIOLIPIN ANTIBODY POSITIVE [None]
  - CELLULITIS [None]
  - PHARYNGEAL ERYTHEMA [None]
  - PHLEBITIS [None]
  - TONSILLAR HYPERTROPHY [None]
